FAERS Safety Report 4476791-0 (Version None)
Quarter: 2004Q4

REPORT INFORMATION
  Report Type: 
  Country: None (occurrence: None)
  Receive Date: 20041013
  Receipt Date: 20041005
  Transmission Date: 20050328
  Serious: Yes (Death)
  Sender: FDA-Public Use
  Company Number: 2004-10-0371

PATIENT
  Age: 51 Year
  Sex: Male

DRUGS (5)
  1. PEG-INTRON [Suspect]
     Indication: HEPATITIS C
     Dosage: SUBCUTANEOUS
     Route: 058
     Dates: start: 20040813
  2. RIBAVIRIN ORALS [Suspect]
     Indication: HEPATITIS C
     Dosage: ORAL
     Route: 048
     Dates: start: 20040813
  3. ACYCLOVIR [Concomitant]
  4. HYDROXYZINE HYDROCHLORIDE TABLETS [Concomitant]
  5. OXAZEPAM [Concomitant]

REACTIONS (1)
  - DEATH [None]
